FAERS Safety Report 15362192 (Version 5)
Quarter: 2018Q4

REPORT INFORMATION
  Report Type: Report from Study
  Country: CO (occurrence: CO)
  Receive Date: 20180907
  Receipt Date: 20181019
  Transmission Date: 20190204
  Serious: Yes (Hospitalization, Disabling, Other)
  Sender: FDA-Public Use
  Company Number: PHHY2017CO103248

PATIENT
  Age: 28 Year
  Sex: Male
  Weight: 54 kg

DRUGS (4)
  1. TASIGNA [Suspect]
     Active Substance: NILOTINIB
     Dosage: 400 MG, QD
     Route: 048
  2. TASIGNA [Suspect]
     Active Substance: NILOTINIB
     Dosage: 300 MG, QD
     Route: 048
     Dates: start: 20171111
  3. TASIGNA [Suspect]
     Active Substance: NILOTINIB
     Indication: CHRONIC MYELOID LEUKAEMIA
     Dosage: 600 MG, QD
     Route: 048
     Dates: start: 20170111
  4. TASIGNA [Suspect]
     Active Substance: NILOTINIB
     Dosage: 600 MG, Q12H
     Route: 048
     Dates: start: 201701

REACTIONS (26)
  - Choking [Unknown]
  - Gastrointestinal disorder [Unknown]
  - Platelet count increased [Unknown]
  - Abdominal pain [Recovering/Resolving]
  - Malaise [Recovering/Resolving]
  - Psychiatric symptom [Recovering/Resolving]
  - Red blood cell count abnormal [Recovering/Resolving]
  - Platelet disorder [Unknown]
  - Headache [Recovering/Resolving]
  - Feeling hot [Unknown]
  - Pyrexia [Recovering/Resolving]
  - Incorrect dose administered [Unknown]
  - Chronic myeloid leukaemia recurrent [Unknown]
  - Haematemesis [Unknown]
  - Productive cough [Unknown]
  - Inappropriate schedule of product administration [Unknown]
  - Platelet count decreased [Unknown]
  - Haemoglobin abnormal [Unknown]
  - Asthenia [Unknown]
  - Dyspnoea [Unknown]
  - Vomiting [Recovering/Resolving]
  - Tonsillitis [Unknown]
  - Bone pain [Unknown]
  - Splenomegaly [Recovering/Resolving]
  - Haemoglobin decreased [Unknown]
  - Abnormal faeces [Unknown]

NARRATIVE: CASE EVENT DATE: 20170623
